FAERS Safety Report 8055017-5 (Version None)
Quarter: 2012Q1

REPORT INFORMATION
  Report Type: 
  Country: None (occurrence: None)
  Receive Date: 20120119
  Receipt Date: 20120116
  Transmission Date: 20120608
  Serious: Yes (Hospitalization, Other)
  Sender: FDA-Public Use
  Company Number: DE-PFIZER INC-2012012504

PATIENT
  Age: 72 Year
  Sex: Female
  Weight: 80 kg

DRUGS (8)
  1. SPIRONOLACTONE [Suspect]
     Indication: HYPERTENSION
     Dosage: UNK
     Route: 048
     Dates: start: 20081209
  2. ALLOPURINOL [Concomitant]
     Indication: HYPERURICAEMIA
     Dosage: UNK
     Dates: start: 20070101
  3. AMLODIPINE BESYLATE [Suspect]
     Indication: HYPERTENSION
     Dosage: 10 MG,/DAY;
     Route: 048
     Dates: start: 20081117
  4. ESOMEPRAZOLE [Suspect]
     Indication: GASTROOESOPHAGEAL REFLUX DISEASE
     Dosage: 20 MG, UNK
     Route: 048
     Dates: start: 20101109
  5. LEVOTHYROXINE SODIUM [Concomitant]
     Indication: GOITRE
     Dosage: UNK
     Dates: start: 20070101
  6. ALISKIREN/HYDROCHLOROTHIAZIDE [Suspect]
     Indication: HYPERTENSION
     Dosage: 300/12.5MG
     Route: 048
     Dates: start: 20081104
  7. ASPIRIN [Concomitant]
     Indication: ARTERIOSCLEROSIS CORONARY ARTERY
     Dosage: UNK
     Dates: start: 20070101
  8. INUVAIR [Suspect]
     Indication: CHRONIC OBSTRUCTIVE PULMONARY DISEASE
     Dosage: 100/6 UG/DAY; REGIMEN 1
     Dates: start: 20070101

REACTIONS (5)
  - DYSPNOEA [None]
  - DIABETES MELLITUS [None]
  - FLATULENCE [None]
  - NAUSEA [None]
  - UTERINE CANCER [None]
